FAERS Safety Report 6493817-3 (Version None)
Quarter: 2009Q4

REPORT INFORMATION
  Report Type: 
  Country: None (occurrence: None)
  Receive Date: 20091209
  Receipt Date: 20091120
  Transmission Date: 20100525
  Serious: Yes (Other)
  Sender: FDA-Public Use
  Company Number: 20090563

PATIENT
  Sex: Female

DRUGS (1)
  1. VENOFER [Suspect]
     Dates: start: 20091120, end: 20091120

REACTIONS (4)
  - BACK PAIN [None]
  - DYSPNOEA [None]
  - INFUSION RELATED REACTION [None]
  - NECK PAIN [None]
